FAERS Safety Report 14803804 (Version 5)
Quarter: 2020Q3

REPORT INFORMATION
  Report Type: Report from Study
  Country: FR (occurrence: FR)
  Receive Date: 20180425
  Receipt Date: 20180523
  Transmission Date: 20201104
  Serious: Yes (Hospitalization)
  Sender: FDA-Public Use
  Company Number: FR-ROCHE-2109465

PATIENT
  Age: 65 Year
  Sex: Female
  Weight: 77.5 kg

DRUGS (19)
  1. METFORMIN [Concomitant]
     Active Substance: METFORMIN HYDROCHLORIDE
     Indication: DIABETES MELLITUS
     Route: 065
     Dates: start: 20180322
  2. SODIUM BICARBONATE. [Concomitant]
     Active Substance: SODIUM BICARBONATE
     Indication: PROPHYLAXIS
     Dosage: BUCCAL MUCOSITIS PROPHYLAXIS
     Route: 065
     Dates: start: 20171106
  3. MORPHINE [Concomitant]
     Active Substance: MORPHINE
     Indication: CANCER PAIN
     Route: 065
     Dates: start: 20171108
  4. ALLOPURINOL. [Concomitant]
     Active Substance: ALLOPURINOL
     Indication: PROPHYLAXIS
     Dosage: TUMOR LYSIS SYNDROME PROHPYLAXIS
     Route: 065
  5. BENDAMUSTINE [Suspect]
     Active Substance: BENDAMUSTINE
     Indication: DIFFUSE LARGE B-CELL LYMPHOMA
     Dosage: ON DAYS 2 AND 3 OF CYCLE 1, THEN ON DAYS 1 AND 2 OF EACH SUBSEQUENT CYCLE FOR UP TO 6 CYCLES (EACH C
     Route: 042
     Dates: start: 20180405
  6. MOXONIDINE [Concomitant]
     Active Substance: MOXONIDINE
     Indication: HYPERTENSION
  7. BISOPROLOL [Concomitant]
     Active Substance: BISOPROLOL
     Indication: HYPERTENSION
  8. EPOETIN ALFA [Concomitant]
     Active Substance: ERYTHROPOIETIN
     Indication: ANAEMIA
  9. POLATUZUMAB VEDOTIN. [Suspect]
     Active Substance: POLATUZUMAB VEDOTIN
     Indication: DIFFUSE LARGE B-CELL LYMPHOMA
     Dosage: ON DAY 2 OF CYCLE 1, THEN ON DAY 1 OF EACH SUBSEQUENT CYCLE FOR UP TO 6 CYCLES (EACH CYCLE IS 21 DAY
     Route: 042
     Dates: start: 20180405
  10. LACTULOSE. [Concomitant]
     Active Substance: LACTULOSE
     Indication: PROPHYLAXIS
     Dosage: PREVENTION OF MORPHIN TOXICITY
     Route: 065
     Dates: start: 20171108
  11. FILGRASTIM [Concomitant]
     Active Substance: FILGRASTIM
     Indication: PROPHYLAXIS
     Route: 065
     Dates: start: 20180409
  12. ESOMEPRAZOLE. [Concomitant]
     Active Substance: ESOMEPRAZOLE MAGNESIUM
     Indication: GASTROOESOPHAGEAL REFLUX PROPHYLAXIS
     Route: 065
     Dates: start: 20180312
  13. PREDNISONE. [Concomitant]
     Active Substance: PREDNISONE
     Indication: CANCER PAIN
     Route: 065
     Dates: start: 20180312
  14. ALPRAZOLAM. [Concomitant]
     Active Substance: ALPRAZOLAM
     Indication: ANXIETY
     Route: 065
     Dates: start: 20180119
  15. BACTRIM [Concomitant]
     Active Substance: SULFAMETHOXAZOLE\TRIMETHOPRIM
     Indication: PROPHYLAXIS
     Dosage: PNEUMOCYSTIS INFECTION PROPHYLAXIS
     Route: 065
     Dates: start: 20170703
  16. VALACICLOVIR [Concomitant]
     Active Substance: VALACYCLOVIR HYDROCHLORIDE
     Indication: PROPHYLAXIS
     Dosage: HSV INFECTION PROPHYLAXIS
     Route: 065
     Dates: start: 20170703
  17. RITUXIMAB. [Suspect]
     Active Substance: RITUXIMAB
     Indication: DIFFUSE LARGE B-CELL LYMPHOMA
     Dosage: ON DAY 1 OF EACH CYCLE FOR UP TO 6 CYCLES (EACH CYCLE IS 21 DAYS)?DATE OF MOST RECENT DOSE OF RITUXI
     Route: 042
     Dates: start: 20180404
  18. GLICLAZIDE [Concomitant]
     Active Substance: GLICLAZIDE
     Indication: DIABETES MELLITUS
  19. ENTECAVIR. [Concomitant]
     Active Substance: ENTECAVIR
     Indication: PROPHYLAXIS
     Dosage: HBV INFECTION PROPHYLAXIS
     Route: 065
     Dates: start: 20160830

REACTIONS (2)
  - General physical health deterioration [Recovered/Resolved]
  - Vomiting [Not Recovered/Not Resolved]

NARRATIVE: CASE EVENT DATE: 20180416
